FAERS Safety Report 6282104-4 (Version None)
Quarter: 2009Q3

REPORT INFORMATION
  Report Type: 
  Country: None (occurrence: None)
  Receive Date: 20090724
  Receipt Date: 20090715
  Transmission Date: 20100115
  Serious: Yes (Hospitalization, Other)
  Sender: FDA-Public Use
  Company Number: CA-JNJFOC-20090704960

PATIENT
  Sex: Male
  Weight: 74 kg

DRUGS (15)
  1. REMICADE [Suspect]
     Route: 042
  2. REMICADE [Suspect]
     Indication: ANKYLOSING SPONDYLITIS
     Route: 042
  3. BENADRYL [Concomitant]
     Indication: PREMEDICATION
     Route: 030
  4. APO-QUININE [Concomitant]
     Dosage: HS
     Route: 048
  5. ADVAIR HFA [Concomitant]
     Route: 055
  6. ADVAIR HFA [Concomitant]
     Route: 055
  7. PANTOPRAZOLE SODIUM [Concomitant]
  8. APO-GABAPENTIN [Concomitant]
  9. CELEBREX [Concomitant]
  10. CIALIS [Concomitant]
  11. HYDROXYZINE [Concomitant]
     Dosage: AS NEEDED
  12. KETODERM CREAM [Concomitant]
     Route: 061
  13. ELOCON [Concomitant]
     Route: 061
  14. SPIRIVA [Concomitant]
     Dosage: MORNING
     Route: 055
  15. BONAMINE [Concomitant]
     Dosage: AS NEEDED

REACTIONS (8)
  - DYSPNOEA [None]
  - ERYTHEMA [None]
  - FLUSHING [None]
  - HYPERTENSION [None]
  - INFUSION RELATED REACTION [None]
  - TACHYCARDIA [None]
  - TACHYPNOEA [None]
  - TREMOR [None]
